FAERS Safety Report 4620448-X (Version None)
Quarter: 2005Q1

REPORT INFORMATION
  Report Type: 
  Country: None (occurrence: None)
  Receive Date: 20050324
  Receipt Date: 20050310
  Transmission Date: 20050727
  Serious: Yes (Hospitalization, Other)
  Sender: FDA-Public Use
  Company Number: HQWYE018002FEB05

PATIENT
  Age: 85 Year
  Sex: Male

DRUGS (8)
  1. CORDARONE [Suspect]
     Dosage: 200 MG 1X PER 1 DAY
     Route: 048
     Dates: start: 20041004, end: 20041223
  2. DI-ANTALVIC (DEXTROPROPOXYPHENE HYDROCHLORIDE/PARACETAMOL, ) [Suspect]
     Dosage: 2 DF 3 X PER 1 DAY
     Route: 048
     Dates: start: 20041002
  3. IMOVANE (ZOPICLONE, ) [Suspect]
     Dosage: 1 DF 1 X PER 1 DAY
     Route: 048
     Dates: start: 20040928
  4. MABTHERA (RITUXIMAB, ) [Suspect]
     Dosage: SEE IMAGE
     Route: 042
     Dates: start: 20041209, end: 20041209
  5. MABTHERA (RITUXIMAB, ) [Suspect]
     Dosage: SEE IMAGE
     Route: 042
     Dates: start: 20041216, end: 20041216
  6. OMEPRAZOLE [Suspect]
     Dosage: 20 MG 1X PER 1 DAY
     Route: 048
  7. ALLOPURINOL [Suspect]
     Dosage: 200 MG 2X PER 1 DAY
     Route: 048
     Dates: start: 20041004, end: 20041223
  8. CHLORAMBUCIL (CHLORAMBUCIL) [Concomitant]

REACTIONS (4)
  - HEPATOCELLULAR DAMAGE [None]
  - PROTHROMBIN TIME PROLONGED [None]
  - RASH MACULO-PAPULAR [None]
  - SKIN EXFOLIATION [None]
